FAERS Safety Report 13972531 (Version 1)
Quarter: 2017Q3

REPORT INFORMATION
  Report Type: Spontaneous
  Country: CA (occurrence: CA)
  Receive Date: 20170914
  Receipt Date: 20170914
  Transmission Date: 20171128
  Serious: Yes (Death, Life-Threatening, Disabling)
  Sender: FDA-Public Use
  Company Number: CA-009507513-1709CAN005915

PATIENT
  Age: 73 Year
  Sex: Female
  Weight: 80 kg

DRUGS (9)
  1. GLICLAZIDE [Concomitant]
     Active Substance: GLICLAZIDE
  2. METFORMIN [Concomitant]
     Active Substance: METFORMIN HYDROCHLORIDE
  3. KEYTRUDA [Suspect]
     Active Substance: PEMBROLIZUMAB
     Indication: LUNG CARCINOMA CELL TYPE UNSPECIFIED STAGE IV
     Dosage: 164 MG, 1 EVERY 3 WEEKS
     Route: 042
  4. METOPROLOL. [Concomitant]
     Active Substance: METOPROLOL
  5. SLOW-K [Concomitant]
     Active Substance: POTASSIUM CHLORIDE
  6. BUSPIRONE HYDROCHLORIDE. [Concomitant]
     Active Substance: BUSPIRONE HYDROCHLORIDE
  7. ATORVASTATIN CALCIUM. [Concomitant]
     Active Substance: ATORVASTATIN CALCIUM
  8. HYDROCHLOROTHIAZIDE (+) IRBESARTAN [Concomitant]
     Active Substance: HYDROCHLOROTHIAZIDE\IRBESARTAN
  9. PREDNISONE. [Concomitant]
     Active Substance: PREDNISONE

REACTIONS (9)
  - Hypotension [Fatal]
  - Cardiac arrest [Fatal]
  - Myasthenic syndrome [Fatal]
  - Neuropathy peripheral [Fatal]
  - Bradycardia [Fatal]
  - Muscular weakness [Fatal]
  - Atrioventricular block [Fatal]
  - Dizziness [Fatal]
  - Facial paresis [Fatal]
